FAERS Safety Report 11611744 (Version 1)
Quarter: 2015Q4

REPORT INFORMATION
  Report Type: Spontaneous
  Country: SE (occurrence: SE)
  Receive Date: 20151008
  Receipt Date: 20151008
  Transmission Date: 20160304
  Serious: Yes (Life-Threatening, Other)
  Sender: FDA-Public Use
  Company Number: SE-TEVA-599157ISR

PATIENT
  Age: 69 Year
  Sex: Female

DRUGS (2)
  1. METHOTREXATE [Suspect]
     Active Substance: METHOTREXATE
     Dosage: INFUSION CONCENTRATE
  2. REMICADE [Suspect]
     Active Substance: INFLIXIMAB
     Dosage: INFUSION CONCETRATE

REACTIONS (1)
  - Meningoencephalitis herpetic [Unknown]
